FAERS Safety Report 11614861 (Version 1)
Quarter: 2015Q4

REPORT INFORMATION
  Report Type: Spontaneous
  Country: CZ (occurrence: CZ)
  Receive Date: 20151009
  Receipt Date: 20151009
  Transmission Date: 20160304
  Serious: Yes (Death, Other)
  Sender: FDA-Public Use
  Company Number: CZ-ACCORD-034141

PATIENT
  Age: 65 Year
  Sex: Female
  Weight: 75 kg

DRUGS (3)
  1. TOPOTECAN/TOPOTECAN HYDROCHLORIDE [Suspect]
     Active Substance: TOPOTECAN\TOPOTECAN HYDROCHLORIDE
     Indication: OVARIAN EPITHELIAL CANCER
     Dates: start: 201409
  2. CARBOPLATIN. [Suspect]
     Active Substance: CARBOPLATIN
     Indication: OVARIAN EPITHELIAL CANCER
     Dates: start: 201402
  3. PACLITAXEL/PACLITAXEL LIPOSOME [Suspect]
     Active Substance: PACLITAXEL
     Indication: OVARIAN EPITHELIAL CANCER
     Dates: start: 201402

REACTIONS (31)
  - Chest pain [None]
  - Hypoxia [None]
  - Metastases to lymph nodes [None]
  - Asthenia [None]
  - Hypoalbuminaemia [None]
  - Respiratory failure [None]
  - Ovarian cancer recurrent [None]
  - Decreased appetite [None]
  - Oxygen saturation decreased [None]
  - Dyspnoea [None]
  - Polyuria [Unknown]
  - Polydipsia [Unknown]
  - Liver function test abnormal [Unknown]
  - Renal function test abnormal [Unknown]
  - Cough [None]
  - Interstitial lung disease [None]
  - Visual impairment [None]
  - Blood fibrinogen increased [None]
  - Fibrin D dimer increased [None]
  - Opportunistic infection [None]
  - Pancytopenia [Unknown]
  - Febrile neutropenia [Unknown]
  - Fatigue [None]
  - Metastases to lung [None]
  - Diplopia [None]
  - Metastases to central nervous system [None]
  - Thirst [None]
  - Pollakiuria [None]
  - Protein total abnormal [None]
  - Pulmonary embolism [None]
  - Pyrexia [None]
